FAERS Safety Report 13554148 (Version 2)
Quarter: 2017Q2

REPORT INFORMATION
  Report Type: Spontaneous
  Country: US (occurrence: US)
  Receive Date: 20170517
  Receipt Date: 20170620
  Transmission Date: 20170830
  Serious: Yes (Disabling)
  Sender: FDA-Public Use
  Company Number: US-SHIRE-US201710559

PATIENT
  Age: 59 Year
  Sex: Male
  Weight: 86.17 kg

DRUGS (3)
  1. VYVANSE [Suspect]
     Active Substance: LISDEXAMFETAMINE DIMESYLATE
     Dosage: 40 MG, 1X/DAY:QD
     Route: 048
     Dates: start: 20170428
  2. VYVANSE [Suspect]
     Active Substance: LISDEXAMFETAMINE DIMESYLATE
     Dosage: 20 MG, 1X/DAY:QD
     Route: 048
     Dates: start: 2016, end: 2016
  3. VYVANSE [Suspect]
     Active Substance: LISDEXAMFETAMINE DIMESYLATE
     Indication: ATTENTION DEFICIT/HYPERACTIVITY DISORDER
     Dosage: 50 MG, 1X/DAY:QD
     Route: 048
     Dates: start: 20170501, end: 20170502

REACTIONS (7)
  - Insomnia [Not Recovered/Not Resolved]
  - Dizziness [Recovered/Resolved]
  - Product quality issue [Unknown]
  - Emotional distress [Unknown]
  - Vertigo [Recovered/Resolved]
  - Balance disorder [Recovered/Resolved]
  - Fear [Not Recovered/Not Resolved]

NARRATIVE: CASE EVENT DATE: 2016
